FAERS Safety Report 9236545 (Version 2)
Quarter: 2013Q2

REPORT INFORMATION
  Report Type: Spontaneous
  Country: BR (occurrence: BR)
  Receive Date: 20130417
  Receipt Date: 20130419
  Transmission Date: 20140414
  Serious: Yes (Hospitalization)
  Sender: FDA-Public Use
  Company Number: BR-ROCHE-1061033

PATIENT
  Age: 43 Year
  Sex: Female

DRUGS (2)
  1. ROACUTAN [Suspect]
     Indication: PRODUCT USED FOR UNKNOWN INDICATION
     Route: 065
  2. NEOZINE [Concomitant]

REACTIONS (1)
  - Parotitis [Recovered/Resolved]
